FAERS Safety Report 9177903 (Version 1)
Quarter: 2013Q1

REPORT INFORMATION
  Report Type: Spontaneous
  Country: US (occurrence: None)
  Receive Date: 20130318
  Receipt Date: 20130318
  Transmission Date: 20140127
  Serious: Yes (Other)
  Sender: FDA-Public Use
  Company Number: 1627133

PATIENT
  Age: 95 Year
  Sex: Male

DRUGS (1)
  1. MORPHINE SULPHATE [Suspect]

REACTIONS (3)
  - Completed suicide [None]
  - Overdose [None]
  - Refusal of treatment by patient [None]
